FAERS Safety Report 25615564 (Version 1)
Quarter: 2025Q3

REPORT INFORMATION
  Report Type: Spontaneous
  Country: CN (occurrence: CN)
  Receive Date: 20250729
  Receipt Date: 20250729
  Transmission Date: 20251021
  Serious: Yes (Other)
  Sender: ROCHE
  Company Number: CN-ROCHE-10000345999

PATIENT
  Age: 57 Year
  Sex: Male
  Weight: 54 kg

DRUGS (10)
  1. BEVACIZUMAB [Suspect]
     Active Substance: BEVACIZUMAB
     Indication: Pancreatic carcinoma
     Dosage: FOR 1 DAY
     Route: 042
  2. INVESTIGATIONAL PRODUCT [Suspect]
     Active Substance: INVESTIGATIONAL PRODUCT
     Indication: Pancreatic carcinoma
     Dosage: 4 AND 5 DAYS
     Route: 042
  3. SINTILIMAB [Suspect]
     Active Substance: SINTILIMAB
     Indication: Pancreatic carcinoma
     Dosage: FOR 1 DAY
     Route: 042
  4. OXALIPLATIN [Suspect]
     Active Substance: OXALIPLATIN
     Indication: Pancreatic carcinoma
     Route: 065
     Dates: start: 20230724, end: 20240106
  5. IRINOTECAN [Suspect]
     Active Substance: IRINOTECAN
     Indication: Pancreatic carcinoma
     Route: 065
     Dates: start: 20230724, end: 20240106
  6. LEUCOVORIN CALCIUM [Suspect]
     Active Substance: LEUCOVORIN CALCIUM
     Indication: Pancreatic carcinoma
     Route: 065
     Dates: start: 20230724, end: 20240106
  7. FLUOROURACIL [Suspect]
     Active Substance: FLUOROURACIL
     Indication: Pancreatic carcinoma
     Route: 065
     Dates: start: 20230724, end: 20240106
  8. PACLITAXEL [Concomitant]
     Active Substance: PACLITAXEL
  9. GEMCITABINE [Concomitant]
     Active Substance: GEMCITABINE
  10. IRBESARTAN [Concomitant]
     Active Substance: IRBESARTAN

REACTIONS (2)
  - Drug-induced liver injury [Recovered/Resolved]
  - Off label use [Unknown]
